FAERS Safety Report 14443846 (Version 1)
Quarter: 2018Q1

REPORT INFORMATION
  Report Type: Spontaneous
  Country: US (occurrence: US)
  Receive Date: 20180125
  Receipt Date: 20180125
  Transmission Date: 20180509
  Serious: Yes (Hospitalization)
  Sender: FDA-Public Use
  Company Number: None

PATIENT
  Age: 4 Year
  Sex: Female
  Weight: 20 kg

DRUGS (3)
  1. MERCAPTOPURINE. [Suspect]
     Active Substance: MERCAPTOPURINE
     Dates: end: 20180114
  2. METHOTREXATE. [Suspect]
     Active Substance: METHOTREXATE
     Dates: end: 20171207
  3. VINCRISTINE SULFATE. [Suspect]
     Active Substance: VINCRISTINE SULFATE
     Dates: end: 20171207

REACTIONS (12)
  - Device connection issue [None]
  - Pyrexia [None]
  - Influenza [None]
  - Procedural haemorrhage [None]
  - Human rhinovirus test positive [None]
  - Enterovirus test positive [None]
  - Cough [None]
  - Aspergillus test positive [None]
  - Hypophosphataemia [None]
  - Abdominal pain [None]
  - Pneumonia [None]
  - Acidosis [None]

NARRATIVE: CASE EVENT DATE: 20180118
